FAERS Safety Report 12906367 (Version 1)
Quarter: 2016Q4

REPORT INFORMATION
  Report Type: Spontaneous
  Country: US (occurrence: US)
  Receive Date: 20161103
  Receipt Date: 20161103
  Transmission Date: 20170207
  Serious: No
  Sender: FDA-Public Use
  Company Number: US-PFIZER INC-2016508788

PATIENT
  Sex: Female

DRUGS (1)
  1. XELJANZ [Suspect]
     Active Substance: TOFACITINIB CITRATE
     Dosage: 5 MG, UNK

REACTIONS (12)
  - Dizziness [Unknown]
  - Pain [Unknown]
  - Musculoskeletal stiffness [Unknown]
  - Amnesia [Unknown]
  - Hypoaesthesia [Unknown]
  - Insomnia [Unknown]
  - Fatigue [Unknown]
  - Paraesthesia [Unknown]
  - Anxiety [Unknown]
  - Dysphagia [Unknown]
  - Headache [Unknown]
  - Disturbance in attention [Unknown]
